FAERS Safety Report 8835741 (Version 2)
Quarter: 2013Q3

REPORT INFORMATION
  Report Type: Spontaneous
  Country: US (occurrence: US)
  Receive Date: 20121011
  Receipt Date: 20130820
  Transmission Date: 20140515
  Serious: Yes (Hospitalization, Other)
  Sender: FDA-Public Use
  Company Number: US-ENDO PHARMACEUTICALS INC.-AMAN20120002

PATIENT
  Age: 65 Year
  Sex: Male
  Weight: 69.92 kg

DRUGS (8)
  1. AMANTADINE HYDROCHLORIDE SYRUP 50MG/5ML [Suspect]
     Indication: PRODUCT USED FOR UNKNOWN INDICATION
     Dosage: UNKNOWN
     Route: 048
  2. AMPYRA [Suspect]
     Indication: GAIT DISTURBANCE
     Route: 048
     Dates: start: 201004, end: 20120726
  3. REBIF [Suspect]
     Indication: PRODUCT USED FOR UNKNOWN INDICATION
     Dosage: 44 ?G
  4. INTERFERON [Concomitant]
     Indication: PRODUCT USED FOR UNKNOWN INDICATION
     Dosage: UNKNOWN
  5. BENICAR [Concomitant]
     Indication: PRODUCT USED FOR UNKNOWN INDICATION
     Dosage: UNKNOWN
  6. BABY ASPIRIN [Concomitant]
     Indication: PRODUCT USED FOR UNKNOWN INDICATION
     Dosage: UNKNOWN
  7. ROPINIROLE [Concomitant]
     Indication: PRODUCT USED FOR UNKNOWN INDICATION
     Dosage: UNKNOWN
  8. CRANBERRY [Concomitant]
     Indication: PRODUCT USED FOR UNKNOWN INDICATION
     Dosage: UNKNOWN

REACTIONS (12)
  - Grand mal convulsion [Recovered/Resolved]
  - Sensory disturbance [Unknown]
  - Unresponsive to stimuli [Unknown]
  - Loss of consciousness [Unknown]
  - Mental impairment [Not Recovered/Not Resolved]
  - Mobility decreased [Not Recovered/Not Resolved]
  - Speech disorder [Recovered/Resolved]
  - Road traffic accident [Recovered/Resolved]
  - Tremor [Recovered/Resolved]
  - Amnesia [Not Recovered/Not Resolved]
  - Confusional state [Not Recovered/Not Resolved]
  - Asthenia [Unknown]
